FAERS Safety Report 16744859 (Version 1)
Quarter: 2019Q3

REPORT INFORMATION
  Report Type: Spontaneous
  Country: BR (occurrence: BR)
  Receive Date: 20190827
  Receipt Date: 20190827
  Transmission Date: 20191005
  Serious: Yes (Other)
  Sender: FDA-Public Use
  Company Number: BR-BEH-2019106097

PATIENT
  Sex: Female

DRUGS (3)
  1. PRIVIGEN [Suspect]
     Active Substance: HUMAN IMMUNOGLOBULIN G
     Indication: PERIPHERAL MOTOR NEUROPATHY
     Route: 042
  2. HIZENTRA [Suspect]
     Active Substance: HUMAN IMMUNOGLOBULIN G
     Indication: PERIPHERAL MOTOR NEUROPATHY
     Dosage: UNK
     Route: 058
     Dates: start: 201808
  3. HUMAN IMMUNOGLOBULIN (INN) [Suspect]
     Active Substance: HUMAN IMMUNOGLOBULIN G
     Indication: PERIPHERAL MOTOR NEUROPATHY
     Route: 042

REACTIONS (3)
  - Meningitis aseptic [Unknown]
  - Product use in unapproved indication [Unknown]
  - No adverse event [Unknown]
